FAERS Safety Report 22323268 (Version 1)
Quarter: 2023Q2

REPORT INFORMATION
  Report Type: Spontaneous
  Country: BR (occurrence: BR)
  Receive Date: 20230516
  Receipt Date: 20230516
  Transmission Date: 20230722
  Serious: Yes (Other)
  Sender: FDA-Public Use
  Company Number: BR-KYOWAKIRIN-2023BKK006992

PATIENT

DRUGS (1)
  1. CRYSVITA [Suspect]
     Active Substance: BUROSUMAB-TWZA
     Indication: Product used for unknown indication
     Dosage: UNK
     Route: 065
     Dates: end: 20230209

REACTIONS (4)
  - Disability [Not Recovered/Not Resolved]
  - Blood phosphorus decreased [Not Recovered/Not Resolved]
  - Pain [Not Recovered/Not Resolved]
  - Product availability issue [Unknown]

NARRATIVE: CASE EVENT DATE: 20230403
